FAERS Safety Report 15213188 (Version 1)
Quarter: 2018Q3

REPORT INFORMATION
  Report Type: Spontaneous
  Country: US (occurrence: US)
  Receive Date: 20180730
  Receipt Date: 20180730
  Transmission Date: 20181010
  Serious: No
  Sender: FDA-Public Use
  Company Number: US-PFIZER INC-2018303862

PATIENT
  Age: 50 Year
  Sex: Female
  Weight: 88.89 kg

DRUGS (1)
  1. RELPAX [Suspect]
     Active Substance: ELETRIPTAN HYDROBROMIDE
     Indication: MIGRAINE
     Dosage: 40 MG, AS NEEDED; (40 MG PILL AS NEEDED)
     Route: 048
     Dates: start: 2015

REACTIONS (1)
  - Renal disorder [Unknown]
